FAERS Safety Report 4458587-9 (Version None)
Quarter: 2004Q3

REPORT INFORMATION
  Report Type: 
  Country: None (occurrence: None)
  Receive Date: 20040917
  Receipt Date: 20030825
  Transmission Date: 20050211
  Serious: Yes (Other)
  Sender: FDA-Public Use
  Company Number: US-JNJFOC-20030805345

PATIENT
  Age: 44 Year
  Sex: Male
  Weight: 86.1834 kg

DRUGS (5)
  1. TOPAMAX [Suspect]
     Indication: WEIGHT DECREASED
     Dosage: 25 MG, 2 IN 1 DAY, ORAL; 200 MG, 2 IN 1 DAY, ORAL
     Route: 048
     Dates: start: 20020801, end: 20030701
  2. TOPAMAX [Suspect]
     Indication: WEIGHT DECREASED
     Dosage: 25 MG, 2 IN 1 DAY, ORAL; 200 MG, 2 IN 1 DAY, ORAL
     Route: 048
     Dates: start: 20030701, end: 20030823
  3. ZYPREXA [Concomitant]
  4. ZOLOFT [Concomitant]
  5. VICODIN [Concomitant]

REACTIONS (3)
  - CONDITION AGGRAVATED [None]
  - DYSARTHRIA [None]
  - WEIGHT DECREASED [None]
